FAERS Safety Report 15855637 (Version 1)
Quarter: 2019Q1

REPORT INFORMATION
  Report Type: Report from Study
  Country: US (occurrence: US)
  Receive Date: 20190122
  Receipt Date: 20190122
  Transmission Date: 20190417
  Serious: Yes (Hospitalization)
  Sender: FDA-Public Use
  Company Number: US-ACTELION-A-NJ2018-171823

PATIENT
  Age: 41 Year
  Sex: Male
  Weight: 64.4 kg

DRUGS (2)
  1. OPSUMIT [Suspect]
     Active Substance: MACITENTAN
     Indication: PULMONARY HYPERTENSION
     Dosage: 10 MG, QD
     Route: 048
  2. ADEMPAS [Concomitant]
     Active Substance: RIOCIGUAT
     Dosage: 1 MG, TID
     Route: 065

REACTIONS (3)
  - Haemoptysis [Unknown]
  - Gastrooesophageal reflux disease [Unknown]
  - Pulmonary haemorrhage [Unknown]
